FAERS Safety Report 11093013 (Version 1)
Quarter: 2015Q2

REPORT INFORMATION
  Report Type: Spontaneous
  Country: US (occurrence: None)
  Receive Date: 20150504
  Receipt Date: 20150504
  Transmission Date: 20150821
  Serious: Yes (Other)
  Sender: FDA-Public Use
  Company Number: CIO15025536

PATIENT
  Age: 54 Year
  Sex: Female

DRUGS (1)
  1. OLAY TOTAL EFFECTS ANTI-AGING MOISTURIZER BROAD SPECTRUM SPF 15 FRAGRANCE FREE [Suspect]
     Active Substance: AVOBENZONE\HOMOSALATE\OCTISALATE\OCTOCRYLENE
     Dosage: MORE THAN A NICKEL BUT LESS THANA QUARTER THREE TIMES 3 DAYS IN THE MORNING, TOPICAL
     Route: 061
     Dates: start: 20150414, end: 20150417

REACTIONS (2)
  - No reaction on previous exposure to drug [None]
  - Hypersensitivity [None]

NARRATIVE: CASE EVENT DATE: 20150414
